FAERS Safety Report 5840487-0 (Version None)
Quarter: 2008Q3

REPORT INFORMATION
  Report Type: 
  Country: None (occurrence: None)
  Receive Date: 20080807
  Receipt Date: 20080807
  Transmission Date: 20090109
  Serious: Yes (Life-Threatening, Other)
  Sender: FDA-Public Use
  Company Number: None

PATIENT
  Age: 55 Year
  Sex: Female
  Weight: 47.6277 kg

DRUGS (1)
  1. ZYFLO CR [Suspect]
     Indication: ASTHMA
     Dosage: 1200MG TWICE A DAY PO
     Route: 048
     Dates: start: 20080130, end: 20080626

REACTIONS (7)
  - COUGH [None]
  - DYSPNOEA [None]
  - DYSPNOEA EXERTIONAL [None]
  - SINUS CONGESTION [None]
  - URTICARIA [None]
  - WHEEZING [None]
  - YELLOW SKIN [None]
